FAERS Safety Report 9221466 (Version 2)
Quarter: 2013Q2

REPORT INFORMATION
  Report Type: Spontaneous
  Country: FR (occurrence: FR)
  Receive Date: 20130410
  Receipt Date: 20130425
  Transmission Date: 20140414
  Serious: Yes (Disabling, Other)
  Sender: FDA-Public Use
  Company Number: FR-009507513-1303FRA011233

PATIENT
  Age: 21 Year
  Sex: Female
  Weight: 71 kg

DRUGS (1)
  1. NEXPLANON [Suspect]
     Indication: PRODUCT USED FOR UNKNOWN INDICATION
     Dosage: UNK
     Route: 058
     Dates: start: 20110915

REACTIONS (5)
  - Loss of consciousness [Unknown]
  - Malaise [Unknown]
  - Inflammation [Unknown]
  - Dysphemia [Not Recovered/Not Resolved]
  - Back pain [Not Recovered/Not Resolved]
